FAERS Safety Report 7759063-8 (Version None)
Quarter: 2011Q3

REPORT INFORMATION
  Report Type: 
  Country: None (occurrence: None)
  Receive Date: 20110919
  Receipt Date: 20110906
  Transmission Date: 20111222
  Serious: Yes (Other)
  Sender: FDA-Public Use
  Company Number: PHEH2011US03592

PATIENT
  Sex: Male
  Weight: 55.782 kg

DRUGS (1)
  1. TASIGNA [Suspect]
     Indication: ACUTE LYMPHOCYTIC LEUKAEMIA
     Dosage: 2 DF, BID
     Route: 048
     Dates: start: 20100406

REACTIONS (3)
  - OESOPHAGEAL OEDEMA [None]
  - DYSPHAGIA [None]
  - LEUKAEMIA RECURRENT [None]
